FAERS Safety Report 10019937 (Version 3)
Quarter: 2014Q2

REPORT INFORMATION
  Report Type: Report from Study
  Country: US (occurrence: US)
  Receive Date: 20140318
  Receipt Date: 20140421
  Transmission Date: 20141212
  Serious: Yes (Hospitalization, Other)
  Sender: FDA-Public Use
  Company Number: US-GILEAD-2014-0096945

PATIENT
  Age: 44 Year
  Sex: Male

DRUGS (3)
  1. ELVITEGRAVIR/EMTRICITABINE/TENOFOVIR DF/COBICISTAT [Suspect]
     Indication: HIV INFECTION
     Dosage: UNK MG, UNK
     Route: 065
  2. ATRIPLA [Concomitant]
     Indication: HIV INFECTION
     Dosage: 1100 MG, UNK
     Route: 065
  3. RIFAMPIN [Concomitant]

REACTIONS (6)
  - Tuberculosis [Unknown]
  - Meningitis [Unknown]
  - Asthenia [Unknown]
  - Hiccups [Unknown]
  - Aphasia [Unknown]
  - Hypokinesia [Unknown]
